FAERS Safety Report 17099206 (Version 1)
Quarter: 2019Q4

REPORT INFORMATION
  Report Type: Spontaneous
  Country: US (occurrence: US)
  Receive Date: 20191105
  Receipt Date: 20191105
  Transmission Date: 20200122
  Serious: No
  Sender: FDA-Public Use
  Company Number: None

PATIENT
  Age: 64 Year
  Sex: Male
  Weight: 124 kg

DRUGS (1)
  1. POLYETHYLENE GLYCOL-3350 AND ELECTROLYTES [Suspect]
     Active Substance: POLYETHYLENE GLYCOL 3350\POTASSIUM CHLORIDE\SODIUM BICARBONATE\SODIUM CHLORIDE\SODIUM SULFATE ANHYDROUS
     Indication: COLONOSCOPY
     Route: 048
     Dates: start: 20191021, end: 20191023

REACTIONS (3)
  - Seizure [None]
  - Inappropriate antidiuretic hormone secretion [None]
  - Hyponatraemia [None]

NARRATIVE: CASE EVENT DATE: 20191023
